FAERS Safety Report 25455664 (Version 1)
Quarter: 2025Q2

REPORT INFORMATION
  Report Type: Report from Study
  Country: CA (occurrence: CA)
  Receive Date: 20250619
  Receipt Date: 20250619
  Transmission Date: 20250717
  Serious: Yes (Congenital Anomaly, Other)
  Sender: TEVA
  Company Number: CA-TEVA-VS-3343613

PATIENT
  Sex: Female

DRUGS (1)
  1. ZOLEDRONIC ACID [Suspect]
     Active Substance: ZOLEDRONIC ACID
     Indication: Osteoporosis
     Dosage: DOSE FORM: SOLUTION INTRAVENOUS
     Route: 065

REACTIONS (3)
  - Chronic kidney disease [Unknown]
  - Anaemia [Unknown]
  - Thalassaemia [Unknown]
